FAERS Safety Report 18569118 (Version 2)
Quarter: 2020Q4

REPORT INFORMATION
  Report Type: Report from Study
  Country: IT (occurrence: IT)
  Receive Date: 20201202
  Receipt Date: 20201224
  Transmission Date: 20210114
  Serious: Yes (Hospitalization)
  Sender: FDA-Public Use
  Company Number: IT-ACCORD-209563

PATIENT
  Age: 77 Year
  Sex: Male

DRUGS (12)
  1. ANAFRANIL [Concomitant]
     Active Substance: CLOMIPRAMINE HYDROCHLORIDE
  2. RANEXA [Concomitant]
     Active Substance: RANOLAZINE
     Dosage: 375 MG
  3. CLOPIDOGREL [Suspect]
     Active Substance: CLOPIDOGREL BISULFATE
     Indication: PRODUCT USED FOR UNKNOWN INDICATION
     Route: 048
     Dates: start: 20200101, end: 20201104
  4. VOLTAREN [Concomitant]
     Active Substance: DICLOFENAC SODIUM
     Indication: BACK PAIN
  5. RAMIPRIL. [Concomitant]
     Active Substance: RAMIPRIL
  6. LAROXYL [Concomitant]
     Active Substance: AMITRIPTYLINE HYDROCHLORIDE
  7. PRADAXA [Suspect]
     Active Substance: DABIGATRAN ETEXILATE MESYLATE
     Indication: ATRIAL FIBRILLATION
     Dosage: 110 MG
     Route: 048
     Dates: start: 20200101, end: 20201104
  8. LASIX [Concomitant]
     Active Substance: FUROSEMIDE
     Dosage: 25 MG
  9. KLACID [Concomitant]
     Active Substance: CLARITHROMYCIN
     Indication: COUGH
  10. FOLINA [Concomitant]
  11. BISOPROLOL [Concomitant]
     Active Substance: BISOPROLOL
  12. MUSCORIL [Concomitant]
     Active Substance: THIOCOLCHICOSIDE
     Indication: BACK PAIN

REACTIONS (2)
  - Petechiae [Unknown]
  - Normocytic anaemia [Unknown]

NARRATIVE: CASE EVENT DATE: 20201104
